FAERS Safety Report 6105061-X (Version None)
Quarter: 2009Q1

REPORT INFORMATION
  Report Type: 
  Country: None (occurrence: None)
  Receive Date: 20090306
  Receipt Date: 20090203
  Transmission Date: 20090719
  Serious: No
  Sender: FDA-Public Use
  Company Number: US-BAYER-200912837NA

PATIENT
  Age: 47 Year
  Sex: Female
  Weight: 52 kg

DRUGS (3)
  1. CLIMARA PRO [Suspect]
     Indication: DRUG USE FOR UNKNOWN INDICATION
     Route: 062
     Dates: start: 20081101
  2. INSULIN [Concomitant]
  3. SYNTHROID [Concomitant]

REACTIONS (2)
  - APPLICATION SITE RASH [None]
  - APPLICATION SITE URTICARIA [None]
